FAERS Safety Report 8140849-5 (Version None)
Quarter: 2012Q1

REPORT INFORMATION
  Report Type: 
  Country: None (occurrence: None)
  Receive Date: 20120216
  Receipt Date: 20120213
  Transmission Date: 20120608
  Serious: Yes (Death, Hospitalization, Other)
  Sender: FDA-Public Use
  Company Number: BR-BAYER-2011-111166

PATIENT
  Age: 50 Year
  Sex: Male

DRUGS (2)
  1. NEXAVAR [Suspect]
     Indication: HEPATIC NEOPLASM MALIGNANT
     Dosage: UNK UNK, UNK
     Route: 048
     Dates: start: 20100101, end: 20110301
  2. BLOOD TRANSFUSION, AUXILIARY PRODUCTS [Concomitant]

REACTIONS (9)
  - MOUTH HAEMORRHAGE [None]
  - DYSPNOEA [None]
  - WOUND HAEMORRHAGE [None]
  - WOUND [None]
  - IMPAIRED HEALING [None]
  - MUSCLE SPASMS [None]
  - DEATH [None]
  - HAEMORRHAGE [None]
  - HAEMORRHOIDAL HAEMORRHAGE [None]
